FAERS Safety Report 4859725-6 (Version None)
Quarter: 2005Q4

REPORT INFORMATION
  Report Type: 
  Country: None (occurrence: None)
  Receive Date: 20051215
  Receipt Date: 20051208
  Transmission Date: 20060501
  Serious: Yes (Hospitalization)
  Sender: FDA-Public Use
  Company Number: CHPA2005US07990

PATIENT
  Age: 71 Year
  Sex: Female
  Weight: 40.8 kg

DRUGS (8)
  1. NICOTINE [Suspect]
     Indication: SMOKING CESSATION THERAPY
     Dosage: 21 MG, QD, TRANSDERMAL
     Route: 062
     Dates: start: 20051111, end: 20051124
  2. NICOTINE [Suspect]
     Indication: SMOKING CESSATION THERAPY
     Dosage: 14 MG, QD, TRANSDERMAL
     Route: 062
     Dates: start: 20051125, end: 20051202
  3. COMBIVENT (IPRATROPIUM BROMIDE, SALBUTAMOL) [Concomitant]
  4. ALBUTEROL [Concomitant]
  5. FOSAMAX [Concomitant]
  6. MIACALCIN [Concomitant]
  7. CALCIUM CARBONATE W/VITAMIN D NOS (CALCIUM CARBONATE, VITAMIN D NOS) [Concomitant]
  8. CENTRIUM SILVER (ASCORBIC ACID, CALCIUM, MINERALS NOS, RETINOL, TOCOPH [Concomitant]

REACTIONS (5)
  - ASTHENIA [None]
  - DYSGEUSIA [None]
  - DYSPNOEA [None]
  - EMOTIONAL DISTRESS [None]
  - THERAPEUTIC AGENT TOXICITY [None]
